FAERS Safety Report 24524505 (Version 2)
Quarter: 2024Q4

REPORT INFORMATION
  Report Type: Report from Study
  Country: US (occurrence: US)
  Receive Date: 20241019
  Receipt Date: 20241029
  Transmission Date: 20250114
  Serious: Yes (Life-Threatening, Hospitalization, Other)
  Sender: ABBVIE
  Company Number: US-ABBVIE-5967533

PATIENT
  Sex: Female
  Weight: 56 kg

DRUGS (3)
  1. CREON [Suspect]
     Active Substance: PANCRELIPASE AMYLASE\PANCRELIPASE LIPASE\PANCRELIPASE PROTEASE
     Indication: Pancreatic failure
     Dosage: FORM STRENGTH: 24000 UNIT
     Route: 048
     Dates: start: 2022
  2. CREON [Suspect]
     Active Substance: PANCRELIPASE AMYLASE\PANCRELIPASE LIPASE\PANCRELIPASE PROTEASE
     Indication: Pancreatic failure
     Dosage: FORM STRENGTH: 24000 UNIT
     Route: 048
     Dates: start: 2020, end: 2020
  3. CREON [Suspect]
     Active Substance: PANCRELIPASE AMYLASE\PANCRELIPASE LIPASE\PANCRELIPASE PROTEASE
     Indication: Pancreatic failure
     Route: 048
     Dates: start: 20210701

REACTIONS (5)
  - Renal failure [Recovering/Resolving]
  - Intensive care unit acquired weakness [Recovering/Resolving]
  - Coma [Recovered/Resolved]
  - Hepatic failure [Recovered/Resolved]
  - Coma [Recovered/Resolved]

NARRATIVE: CASE EVENT DATE: 20210101
